FAERS Safety Report 14087909 (Version 4)
Quarter: 2020Q3

REPORT INFORMATION
  Report Type: Report from Study
  Country: KR (occurrence: KR)
  Receive Date: 20171013
  Receipt Date: 20181207
  Transmission Date: 20201104
  Serious: Yes (Death, Life-Threatening, Hospitalization)
  Sender: FDA-Public Use
  Company Number: KR-ASTRAZENECA-2017SF04602

PATIENT
  Age: 818 Month
  Sex: Male

DRUGS (34)
  1. MORPHINE SULFATE. [Concomitant]
     Active Substance: MORPHINE SULFATE
     Indication: BACK PAIN
     Route: 042
     Dates: start: 20171011, end: 20171011
  2. LASIX [Concomitant]
     Active Substance: FUROSEMIDE
     Indication: HYPERTENSION
     Route: 042
     Dates: start: 20171012, end: 20171013
  3. ATIVAN [Concomitant]
     Active Substance: LORAZEPAM
     Indication: PREMEDICATION
     Route: 048
     Dates: start: 20171011
  4. CURAN [Concomitant]
     Active Substance: RANITIDINE HYDROCHLORIDE
     Indication: PREMEDICATION
     Route: 048
     Dates: start: 20170920, end: 20170923
  5. EMEND [Concomitant]
     Active Substance: APREPITANT
     Indication: PREMEDICATION
     Route: 048
     Dates: start: 20170920, end: 20170922
  6. EMEND [Concomitant]
     Active Substance: APREPITANT
     Indication: PREMEDICATION
     Route: 048
     Dates: start: 20171011, end: 20171011
  7. DEXAMETHASONE. [Concomitant]
     Active Substance: DEXAMETHASONE
     Indication: PREMEDICATION
     Route: 042
     Dates: start: 20171011, end: 20171011
  8. MEDI4736 [Suspect]
     Active Substance: DURVALUMAB
     Indication: NON-SMALL CELL LUNG CANCER
     Route: 042
     Dates: start: 20170920, end: 20170920
  9. TREMELIMUMAB. [Suspect]
     Active Substance: TREMELIMUMAB
     Indication: NON-SMALL CELL LUNG CANCER
     Route: 042
     Dates: start: 20170920, end: 20170920
  10. TREMELIMUMAB. [Suspect]
     Active Substance: TREMELIMUMAB
     Indication: NON-SMALL CELL LUNG CANCER
     Route: 042
     Dates: start: 20171011, end: 20171011
  11. PEMETREXED. [Suspect]
     Active Substance: PEMETREXED
     Indication: NON-SMALL CELL LUNG CANCER
     Dosage: 915 MG/M2
     Route: 042
     Dates: start: 20171011, end: 20171011
  12. PENIRAMIN [Concomitant]
     Indication: CHILLS
     Route: 042
     Dates: start: 20171013, end: 20171013
  13. EMEND [Concomitant]
     Active Substance: APREPITANT
     Indication: PREMEDICATION
     Route: 048
     Dates: start: 20171011
  14. GASTER [Concomitant]
     Active Substance: FAMOTIDINE
     Indication: PREMEDICATION
     Route: 042
     Dates: start: 20171011, end: 20171011
  15. PRAVASTATIN. [Concomitant]
     Active Substance: PRAVASTATIN
     Indication: HYPERLIPIDAEMIA
     Route: 048
  16. MACPERAN [Concomitant]
     Active Substance: METOCLOPRAMIDE HYDROCHLORIDE
     Indication: PREMEDICATION
     Route: 048
     Dates: start: 20171011
  17. CURAN [Concomitant]
     Active Substance: RANITIDINE HYDROCHLORIDE
     Indication: PREMEDICATION
     Route: 048
     Dates: start: 20171011
  18. CISPLATIN. [Suspect]
     Active Substance: CISPLATIN
     Indication: NON-SMALL CELL LUNG CANCER
     Dosage: 137 MG/M2
     Route: 042
     Dates: start: 20171011, end: 20171011
  19. LASIX [Concomitant]
     Active Substance: FUROSEMIDE
     Indication: HYPERTENSION
     Route: 042
     Dates: start: 20170920, end: 20170920
  20. ALOXI [Concomitant]
     Active Substance: PALONOSETRON HYDROCHLORIDE
     Indication: PREMEDICATION
     Route: 042
     Dates: start: 20170920, end: 20170920
  21. MEDI4736 [Suspect]
     Active Substance: DURVALUMAB
     Indication: NON-SMALL CELL LUNG CANCER
     Route: 042
     Dates: start: 20171011, end: 20171011
  22. PEMETREXED. [Suspect]
     Active Substance: PEMETREXED
     Indication: NON-SMALL CELL LUNG CANCER
     Dosage: 915 MG/M2
     Route: 042
     Dates: start: 20170920, end: 20170920
  23. FOLIC ACID. [Concomitant]
     Active Substance: FOLIC ACID
     Indication: PREMEDICATION
     Route: 048
     Dates: start: 20170906
  24. PENIRAMIN [Concomitant]
     Indication: CHILLS
     Route: 042
     Dates: start: 20170920, end: 20170920
  25. PENIRAMIN [Concomitant]
     Indication: CHILLS
     Route: 042
     Dates: start: 20171011, end: 20171011
  26. TWYNSTA [Concomitant]
     Active Substance: AMLODIPINE BESYLATE\TELMISARTAN
     Indication: HYPERTENSION
     Route: 048
  27. EMEND [Concomitant]
     Active Substance: APREPITANT
     Indication: PREMEDICATION
     Route: 048
     Dates: start: 20170920, end: 20170920
  28. ALOXI [Concomitant]
     Active Substance: PALONOSETRON HYDROCHLORIDE
     Indication: PREMEDICATION
     Route: 042
     Dates: start: 20171011, end: 20171011
  29. CISPLATIN. [Suspect]
     Active Substance: CISPLATIN
     Indication: NON-SMALL CELL LUNG CANCER
     Dosage: 137 MG/M2
     Route: 042
     Dates: start: 20170920, end: 20170920
  30. LASIX [Concomitant]
     Active Substance: FUROSEMIDE
     Indication: HYPERTENSION
     Route: 042
     Dates: start: 20171011, end: 20171011
  31. MACPERAN [Concomitant]
     Active Substance: METOCLOPRAMIDE HYDROCHLORIDE
     Indication: PREMEDICATION
     Route: 048
     Dates: start: 20170920, end: 20170925
  32. ATIVAN [Concomitant]
     Active Substance: LORAZEPAM
     Indication: PREMEDICATION
     Route: 048
     Dates: start: 20170920, end: 20170925
  33. DEXAMETHASONE. [Concomitant]
     Active Substance: DEXAMETHASONE
     Indication: PREMEDICATION
     Route: 042
     Dates: start: 20170920, end: 20170920
  34. GASTER [Concomitant]
     Active Substance: FAMOTIDINE
     Indication: PREMEDICATION
     Route: 042
     Dates: start: 20170920, end: 20170920

REACTIONS (4)
  - Autoimmune pancreatitis [Fatal]
  - Autoimmune myocarditis [Fatal]
  - Autoimmune hepatitis [Fatal]
  - Autoimmune nephritis [Fatal]

NARRATIVE: CASE EVENT DATE: 20171012
